FAERS Safety Report 18642926 (Version 1)
Quarter: 2020Q4

REPORT INFORMATION
  Report Type: Spontaneous
  Country: US (occurrence: US)
  Receive Date: 20201221
  Receipt Date: 20201221
  Transmission Date: 20210114
  Serious: No
  Sender: FDA-Public Use
  Company Number: US-JNJFOC-20201220666

PATIENT

DRUGS (1)
  1. ROGAINE [Suspect]
     Active Substance: MINOXIDIL
     Indication: ALOPECIA
     Route: 065

REACTIONS (4)
  - Application site paraesthesia [Unknown]
  - Application site pain [Unknown]
  - Product use in unapproved indication [Unknown]
  - Alopecia [Not Recovered/Not Resolved]
